FAERS Safety Report 4715252-8 (Version None)
Quarter: 2005Q3

REPORT INFORMATION
  Report Type: 
  Country: None (occurrence: None)
  Receive Date: 20050715
  Receipt Date: 20050707
  Transmission Date: 20060218
  Serious: Yes (Hospitalization)
  Sender: FDA-Public Use
  Company Number: US-ROCHE-410334

PATIENT
  Sex: Female

DRUGS (1)
  1. KLONOPIN [Suspect]
     Indication: DRUG USE FOR UNKNOWN INDICATION
     Route: 048

REACTIONS (5)
  - BLOOD PRESSURE DECREASED [None]
  - HEART RATE INCREASED [None]
  - INTENTIONAL MISUSE [None]
  - OVERDOSE [None]
  - SUICIDAL IDEATION [None]
